FAERS Safety Report 5497906-1 (Version None)
Quarter: 2007Q4

REPORT INFORMATION
  Report Type: 
  Country: None (occurrence: None)
  Receive Date: 20071025
  Receipt Date: 20071015
  Transmission Date: 20080405
  Serious: Yes (Other)
  Sender: FDA-Public Use
  Company Number: US-ELI_LILLY_AND_COMPANY-US200710003555

PATIENT
  Sex: Female

DRUGS (7)
  1. FORTEO [Suspect]
     Indication: OSTEOPOROSIS
     Dosage: UNK, UNK
     Dates: start: 20071008
  2. FORTEO [Suspect]
     Dosage: UNK, QOD
  3. MULTI-VITAMIN [Concomitant]
     Dosage: UNK, DAILY (1/D)
  4. ASPIRIN [Concomitant]
     Dosage: UNK, DAILY (1/D)
  5. VITAMIN D [Concomitant]
     Dosage: 400 IU, UNK
  6. LEXAPRO [Concomitant]
  7. PRIMIDONE [Concomitant]

REACTIONS (3)
  - ALTERED STATE OF CONSCIOUSNESS [None]
  - DISTURBANCE IN ATTENTION [None]
  - FATIGUE [None]
